FAERS Safety Report 16123686 (Version 1)
Quarter: 2019Q1

REPORT INFORMATION
  Report Type: Spontaneous
  Country: CA (occurrence: CA)
  Receive Date: 20190327
  Receipt Date: 20190327
  Transmission Date: 20190418
  Serious: Yes (Other)
  Sender: FDA-Public Use
  Company Number: CA-MYLANLABS-2019M1028374

PATIENT
  Age: 52 Year
  Sex: Female

DRUGS (4)
  1. DILAUDID [Suspect]
     Active Substance: HYDROMORPHONE HYDROCHLORIDE
     Indication: NAUSEA
     Dosage: UNK
  2. REMICADE [Suspect]
     Active Substance: INFLIXIMAB
     Indication: CROHN^S DISEASE
     Dosage: 1200 MILLIGRAM, 4 EVERY 1 WEEK
     Route: 042
  3. ONDANSETRON [Suspect]
     Active Substance: ONDANSETRON
     Indication: NAUSEA
     Dosage: UNK
     Route: 042
  4. REMICADE [Suspect]
     Active Substance: INFLIXIMAB
     Indication: IRITIS
     Dosage: UNK

REACTIONS (8)
  - Skin lesion [Not Recovered/Not Resolved]
  - Upper-airway cough syndrome [Not Recovered/Not Resolved]
  - Migraine [Not Recovered/Not Resolved]
  - Vomiting [Not Recovered/Not Resolved]
  - Influenza like illness [Not Recovered/Not Resolved]
  - Urinary tract infection [Not Recovered/Not Resolved]
  - Cellulitis [Not Recovered/Not Resolved]
  - Drug hypersensitivity [Not Recovered/Not Resolved]
